FAERS Safety Report 9379603 (Version 1)
Quarter: 2013Q3

REPORT INFORMATION
  Report Type: Report from Study
  Country: BR (occurrence: BR)
  Receive Date: 20130702
  Receipt Date: 20130702
  Transmission Date: 20140515
  Serious: Yes (Death, Hospitalization, Other)
  Sender: FDA-Public Use
  Company Number: PHHY2013BR067351

PATIENT
  Age: 72 Year
  Sex: Male

DRUGS (9)
  1. GALVUS MET [Suspect]
     Indication: DIABETES MELLITUS
     Dosage: 1 DF (850MG METF/50MG VILDA), BID (ONE IN THE MORNING AND ONE IN THE EVENING)
     Route: 048
  2. DIOVAN HCT [Suspect]
     Indication: HYPERTENSION
     Dosage: 1 DF, (320 MG VALS/ 25 MG AMLO) IN MORNING
     Route: 048
  3. NOVORAPID [Concomitant]
  4. PANTOPRAZOLE [Concomitant]
  5. RITMONORM [Concomitant]
  6. SINVASTACOR [Concomitant]
  7. PRESSAT [Concomitant]
  8. PLASIL [Concomitant]
  9. LOXONIN [Concomitant]

REACTIONS (10)
  - Respiratory arrest [Fatal]
  - Hepatic cancer [Fatal]
  - Dysuria [Not Recovered/Not Resolved]
  - Gallbladder cancer [Recovered/Resolved]
  - Cholelithiasis [Recovered/Resolved]
  - Fall [Recovered/Resolved]
  - Femur fracture [Recovered/Resolved]
  - Thrombosis [Not Recovered/Not Resolved]
  - Cerebrovascular accident [Not Recovered/Not Resolved]
  - Asthenia [Not Recovered/Not Resolved]
